FAERS Safety Report 5534105-9 (Version None)
Quarter: 2007Q4

REPORT INFORMATION
  Report Type: 
  Country: None (occurrence: None)
  Receive Date: 20071130
  Receipt Date: 20071116
  Transmission Date: 20080405
  Serious: Yes (Death, Hospitalization)
  Sender: FDA-Public Use
  Company Number: 2007S1011898

PATIENT
  Age: 85 Year
  Sex: Male

DRUGS (5)
  1. AZATHIOPRINE [Suspect]
     Indication: IDIOPATHIC PULMONARY FIBROSIS
     Dosage: 100 MG; DAILY
  2. PREDNISONE [Concomitant]
  3. BECLOMETHASONE DIPROPIONATE [Concomitant]
  4. NADOLOL [Concomitant]
  5. HYDROCHLOROTHIAZIDE [Concomitant]

REACTIONS (4)
  - ACUTE RESPIRATORY FAILURE [None]
  - PANCYTOPENIA [None]
  - PULMONARY ALVEOLAR HAEMORRHAGE [None]
  - STAPHYLOCOCCAL INFECTION [None]
